FAERS Safety Report 13932594 (Version 2)
Quarter: 2017Q3

REPORT INFORMATION
  Report Type: Spontaneous
  Country: JP (occurrence: JP)
  Receive Date: 20170904
  Receipt Date: 20170914
  Transmission Date: 20171127
  Serious: Yes (Other)
  Sender: FDA-Public Use
  Company Number: JP-ROCHE-1988623

PATIENT

DRUGS (1)
  1. XELODA [Suspect]
     Active Substance: CAPECITABINE
     Indication: COLON CANCER
     Dosage: TREATMENT CYCLE OF THIS MEDICINE NUMBER: 3 OR MORE
     Route: 048
     Dates: start: 20170201

REACTIONS (1)
  - Interstitial lung disease [Not Recovered/Not Resolved]
